FAERS Safety Report 18883298 (Version 3)
Quarter: 2022Q1

REPORT INFORMATION
  Report Type: Spontaneous
  Country: US (occurrence: US)
  Receive Date: 20210212
  Receipt Date: 20220215
  Transmission Date: 20220424
  Serious: No
  Sender: FDA-Public Use
  Company Number: US-TEVA-2021-US-1877970

PATIENT
  Age: 59 Year
  Sex: Female
  Weight: 64.86 kg

DRUGS (17)
  1. OXYBUTYNIN [Suspect]
     Active Substance: OXYBUTYNIN
     Route: 065
  2. FAMOTIDINE [Suspect]
     Active Substance: FAMOTIDINE
     Route: 065
  3. INLYTA [Suspect]
     Active Substance: AXITINIB
     Dosage: 10 MILLIGRAM DAILY; 5MG ORALLY EVERY 12 HOURS
     Route: 048
  4. DEXTROAMPHETAMINE [Concomitant]
     Active Substance: DEXTROAMPHETAMINE
  5. ATORVASTATIN [Concomitant]
     Active Substance: ATORVASTATIN
  6. CETIRIZINE HYDROCHLORIDE [Concomitant]
     Active Substance: CETIRIZINE HYDROCHLORIDE
  7. AMLODIPINE [Concomitant]
     Active Substance: AMLODIPINE BESYLATE
  8. mi acid gas [Concomitant]
  9. pembro infusions [Concomitant]
  10. VAGIFEM [Concomitant]
     Active Substance: ESTRADIOL
  11. ESTRACE [Concomitant]
     Active Substance: ESTRADIOL
  12. FLUTICASONE [Concomitant]
     Active Substance: FLUTICASONE
  13. MAGNESIUM [Concomitant]
     Active Substance: MAGNESIUM
  14. METOPROLOL [Concomitant]
     Active Substance: METOPROLOL
  15. VITAMINS [Concomitant]
     Active Substance: VITAMINS
  16. SIMETHICONE (DIMETHICONE) [Concomitant]
     Active Substance: DIMETHICONE
  17. YUVAFEM [Concomitant]
     Active Substance: ESTRADIOL HEMIHYDRATE

REACTIONS (5)
  - Drug hypersensitivity [Recovered/Resolved]
  - Adverse drug reaction [Recovered/Resolved]
  - Headache [Recovered/Resolved]
  - Pain [Recovered/Resolved]
  - Bone disorder [Unknown]

NARRATIVE: CASE EVENT DATE: 20190101
